FAERS Safety Report 17825871 (Version 1)
Quarter: 2020Q2

REPORT INFORMATION
  Report Type: Spontaneous
  Country: US (occurrence: US)
  Receive Date: 20200526
  Receipt Date: 20200526
  Transmission Date: 20200714
  Serious: Yes (Hospitalization)
  Sender: FDA-Public Use
  Company Number: US-FRESENIUS MEDICAL CARE RENAL THERAPIES GROUP-FMC-2005-000543

PATIENT
  Age: 60 Year
  Sex: Male
  Weight: 96.8 kg

DRUGS (8)
  1. DILTIAZEM. [Concomitant]
     Active Substance: DILTIAZEM
     Route: 048
  2. PROCARDIA [Concomitant]
     Active Substance: NIFEDIPINE
     Route: 048
  3. ASPIRIN. [Concomitant]
     Active Substance: ASPIRIN
     Route: 048
  4. DELFLEX [Suspect]
     Active Substance: CALCIUM CHLORIDE\DEXTROSE\MAGNESIUM CHLORIDE\SODIUM CHLORIDE\SODIUM LACTATE
     Indication: END STAGE RENAL DISEASE
     Dosage: 4 EXCHANGES OF 2.5 LITERS , LAST FILL 2.5 LITERS, DWELL TIME 1 OUR 30 MINUTES
     Route: 033
     Dates: start: 20141117
  5. BYSTOLIC [Concomitant]
     Active Substance: NEBIVOLOL HYDROCHLORIDE
     Route: 048
  6. FOLIC ACID. [Concomitant]
     Active Substance: FOLIC ACID
     Dosage: DAILY
     Route: 048
  7. ERGOCALCIFEROL. [Concomitant]
     Active Substance: ERGOCALCIFEROL
     Route: 048
  8. NIFEREX [Concomitant]
     Route: 048

REACTIONS (8)
  - Hyperkalaemia [Recovered/Resolved]
  - Urinary tract infection [Recovered/Resolved]
  - Sepsis [Recovered/Resolved]
  - Peritonitis [Recovering/Resolving]
  - Delirium [Recovered/Resolved]
  - Respiratory failure [Recovered/Resolved]
  - Fluid overload [Recovered/Resolved]
  - Hiccups [Recovered/Resolved]
